FAERS Safety Report 13114004 (Version 5)
Quarter: 2018Q2

REPORT INFORMATION
  Report Type: Report from Study
  Country: US (occurrence: US)
  Receive Date: 20170113
  Receipt Date: 20180525
  Transmission Date: 20180711
  Serious: Yes (Hospitalization)
  Sender: FDA-Public Use
  Company Number: US-JNJFOC-20161120400

PATIENT
  Age: 78 Year
  Sex: Female

DRUGS (19)
  1. IMBRUVICA [Suspect]
     Active Substance: IBRUTINIB
     Indication: HAEMATOLOGICAL MALIGNANCY
     Route: 048
     Dates: start: 201802
  2. IMBRUVICA [Suspect]
     Active Substance: IBRUTINIB
     Indication: HAEMATOLOGICAL MALIGNANCY
     Route: 048
     Dates: start: 20161013, end: 20161202
  3. IMBRUVICA [Suspect]
     Active Substance: IBRUTINIB
     Indication: CHRONIC LYMPHOCYTIC LEUKAEMIA
     Route: 048
     Dates: start: 20160925
  4. PRILOSEC [Concomitant]
     Active Substance: OMEPRAZOLE MAGNESIUM
     Indication: ABDOMINAL DISCOMFORT
  5. LOSARTAN POTASSIUM/HCTZ [Concomitant]
     Active Substance: HYDROCHLOROTHIAZIDE\LOSARTAN POTASSIUM
  6. LOSARTAN POTASSIUM. [Concomitant]
     Active Substance: LOSARTAN POTASSIUM
  7. XANAX [Concomitant]
     Active Substance: ALPRAZOLAM
  8. IMBRUVICA [Suspect]
     Active Substance: IBRUTINIB
     Indication: CHRONIC LYMPHOCYTIC LEUKAEMIA
     Route: 048
     Dates: start: 20161111
  9. IMBRUVICA [Suspect]
     Active Substance: IBRUTINIB
     Indication: CHRONIC LYMPHOCYTIC LEUKAEMIA
     Route: 048
     Dates: start: 201802
  10. VITAMIN D [Concomitant]
     Active Substance: CHOLECALCIFEROL
  11. ANTIVERT [Concomitant]
     Active Substance: MECLIZINE HYDROCHLORIDE
  12. IMODIUM A-D [Concomitant]
     Active Substance: LOPERAMIDE HYDROCHLORIDE
  13. IMBRUVICA [Suspect]
     Active Substance: IBRUTINIB
     Indication: HAEMATOLOGICAL MALIGNANCY
     Route: 048
     Dates: start: 20161112, end: 201612
  14. ALLOPURINOL. [Concomitant]
     Active Substance: ALLOPURINOL
  15. TOPROL XL [Concomitant]
     Active Substance: METOPROLOL SUCCINATE
  16. IMBRUVICA [Suspect]
     Active Substance: IBRUTINIB
     Indication: CHRONIC LYMPHOCYTIC LEUKAEMIA
     Route: 048
     Dates: start: 20161013, end: 20161202
  17. IMBRUVICA [Suspect]
     Active Substance: IBRUTINIB
     Indication: CHRONIC LYMPHOCYTIC LEUKAEMIA
     Route: 048
     Dates: start: 20161112, end: 201612
  18. IMBRUVICA [Suspect]
     Active Substance: IBRUTINIB
     Indication: HAEMATOLOGICAL MALIGNANCY
     Route: 048
     Dates: start: 20161111
  19. IMBRUVICA [Suspect]
     Active Substance: IBRUTINIB
     Indication: HAEMATOLOGICAL MALIGNANCY
     Route: 048
     Dates: start: 20160925

REACTIONS (6)
  - Splenomegaly [Unknown]
  - Hypertension [Recovering/Resolving]
  - Heart rate increased [Recovering/Resolving]
  - Atrial fibrillation [Recovering/Resolving]
  - Insomnia [Not Recovered/Not Resolved]
  - Anaemia [Unknown]

NARRATIVE: CASE EVENT DATE: 2016
